FAERS Safety Report 25495520 (Version 1)
Quarter: 2025Q2

REPORT INFORMATION
  Report Type: Report from Study
  Country: DE (occurrence: DE)
  Receive Date: 20250630
  Receipt Date: 20250630
  Transmission Date: 20250716
  Serious: Yes (Hospitalization)
  Sender: MYLAN
  Company Number: DE-UCBSA-2025033766

PATIENT
  Sex: Female

DRUGS (40)
  1. METHOTREXATE [Suspect]
     Active Substance: METHOTREXATE
     Indication: Product used for unknown indication
     Dates: start: 20220117, end: 20220208
  2. METHOTREXATE [Suspect]
     Active Substance: METHOTREXATE
     Route: 065
     Dates: start: 20220117, end: 20220208
  3. METHOTREXATE [Suspect]
     Active Substance: METHOTREXATE
     Route: 065
     Dates: start: 20220117, end: 20220208
  4. METHOTREXATE [Suspect]
     Active Substance: METHOTREXATE
     Dates: start: 20220117, end: 20220208
  5. CERTOLIZUMAB PEGOL [Suspect]
     Active Substance: CERTOLIZUMAB PEGOL
     Indication: Product used for unknown indication
     Dates: start: 20230306, end: 20230613
  6. CERTOLIZUMAB PEGOL [Suspect]
     Active Substance: CERTOLIZUMAB PEGOL
     Dates: start: 20230306, end: 20230613
  7. CERTOLIZUMAB PEGOL [Suspect]
     Active Substance: CERTOLIZUMAB PEGOL
     Route: 065
     Dates: start: 20230306, end: 20230613
  8. CERTOLIZUMAB PEGOL [Suspect]
     Active Substance: CERTOLIZUMAB PEGOL
     Route: 065
     Dates: start: 20230306, end: 20230613
  9. CERTOLIZUMAB PEGOL [Suspect]
     Active Substance: CERTOLIZUMAB PEGOL
     Dates: start: 20230910, end: 20240104
  10. CERTOLIZUMAB PEGOL [Suspect]
     Active Substance: CERTOLIZUMAB PEGOL
     Dates: start: 20230910, end: 20240104
  11. CERTOLIZUMAB PEGOL [Suspect]
     Active Substance: CERTOLIZUMAB PEGOL
     Route: 065
     Dates: start: 20230910, end: 20240104
  12. CERTOLIZUMAB PEGOL [Suspect]
     Active Substance: CERTOLIZUMAB PEGOL
     Route: 065
     Dates: start: 20230910, end: 20240104
  13. HYRIMOZ [Suspect]
     Active Substance: ADALIMUMAB-ADAZ
     Indication: Product used for unknown indication
     Dates: start: 20200625, end: 20200825
  14. HYRIMOZ [Suspect]
     Active Substance: ADALIMUMAB-ADAZ
     Dates: start: 20200625, end: 20200825
  15. HYRIMOZ [Suspect]
     Active Substance: ADALIMUMAB-ADAZ
     Route: 065
     Dates: start: 20200625, end: 20200825
  16. HYRIMOZ [Suspect]
     Active Substance: ADALIMUMAB-ADAZ
     Route: 065
     Dates: start: 20200625, end: 20200825
  17. HYRIMOZ [Suspect]
     Active Substance: ADALIMUMAB-ADAZ
     Dates: start: 20201008, end: 20201213
  18. HYRIMOZ [Suspect]
     Active Substance: ADALIMUMAB-ADAZ
     Dates: start: 20201008, end: 20201213
  19. HYRIMOZ [Suspect]
     Active Substance: ADALIMUMAB-ADAZ
     Route: 065
     Dates: start: 20201008, end: 20201213
  20. HYRIMOZ [Suspect]
     Active Substance: ADALIMUMAB-ADAZ
     Route: 065
     Dates: start: 20201008, end: 20201213
  21. ERELZI [Suspect]
     Active Substance: ETANERCEPT-SZZS
     Indication: Product used for unknown indication
  22. ERELZI [Suspect]
     Active Substance: ETANERCEPT-SZZS
     Route: 065
  23. ERELZI [Suspect]
     Active Substance: ETANERCEPT-SZZS
     Route: 065
  24. ERELZI [Suspect]
     Active Substance: ETANERCEPT-SZZS
  25. IBUPROFEN [Suspect]
     Active Substance: IBUPROFEN
     Indication: Product used for unknown indication
     Dates: start: 20201115, end: 20201120
  26. IBUPROFEN [Suspect]
     Active Substance: IBUPROFEN
     Dates: start: 20201115, end: 20201120
  27. IBUPROFEN [Suspect]
     Active Substance: IBUPROFEN
     Route: 065
     Dates: start: 20201115, end: 20201120
  28. IBUPROFEN [Suspect]
     Active Substance: IBUPROFEN
     Route: 065
     Dates: start: 20201115, end: 20201120
  29. IBUPROFEN [Suspect]
     Active Substance: IBUPROFEN
  30. IBUPROFEN [Suspect]
     Active Substance: IBUPROFEN
  31. IBUPROFEN [Suspect]
     Active Substance: IBUPROFEN
     Route: 065
  32. IBUPROFEN [Suspect]
     Active Substance: IBUPROFEN
     Route: 065
  33. IDACIO [Suspect]
     Active Substance: ADALIMUMAB-AACF
     Indication: Product used for unknown indication
     Dates: start: 20201230, end: 20220130
  34. IDACIO [Suspect]
     Active Substance: ADALIMUMAB-AACF
     Route: 065
     Dates: start: 20201230, end: 20220130
  35. IDACIO [Suspect]
     Active Substance: ADALIMUMAB-AACF
     Route: 065
     Dates: start: 20201230, end: 20220130
  36. IDACIO [Suspect]
     Active Substance: ADALIMUMAB-AACF
     Dates: start: 20201230, end: 20220130
  37. INFLIXIMAB [Suspect]
     Active Substance: INFLIXIMAB
     Indication: Product used for unknown indication
     Dates: start: 20220215, end: 20221124
  38. INFLIXIMAB [Suspect]
     Active Substance: INFLIXIMAB
     Route: 065
     Dates: start: 20220215, end: 20221124
  39. INFLIXIMAB [Suspect]
     Active Substance: INFLIXIMAB
     Route: 065
     Dates: start: 20220215, end: 20221124
  40. INFLIXIMAB [Suspect]
     Active Substance: INFLIXIMAB
     Dates: start: 20220215, end: 20221124

REACTIONS (2)
  - Spinal osteoarthritis [Unknown]
  - Abdominal pain upper [Unknown]

NARRATIVE: CASE EVENT DATE: 20240424
